FAERS Safety Report 23682529 (Version 1)
Quarter: 2024Q1

REPORT INFORMATION
  Report Type: Spontaneous
  Country: CN (occurrence: CN)
  Receive Date: 20240328
  Receipt Date: 20240328
  Transmission Date: 20240410
  Serious: Yes (Other)
  Sender: FDA-Public Use
  Company Number: CN-PFIZER INC-PV202400040210

PATIENT
  Age: 61 Year
  Sex: Male
  Weight: 80 kg

DRUGS (1)
  1. VARENICLINE TARTRATE [Suspect]
     Active Substance: VARENICLINE TARTRATE
     Indication: Chronic obstructive pulmonary disease
     Dosage: 1 TABLET, 1X/DAY
     Route: 048
     Dates: start: 20240320, end: 20240321

REACTIONS (9)
  - Cough [Recovering/Resolving]
  - Chest pain [Recovering/Resolving]
  - Troponin increased [Not Recovered/Not Resolved]
  - Pain [Unknown]
  - Chest discomfort [Unknown]
  - Discomfort [Unknown]
  - Coronary artery stenosis [Unknown]
  - Acute coronary syndrome [Unknown]
  - Off label use [Unknown]

NARRATIVE: CASE EVENT DATE: 20240320
